FAERS Safety Report 21837351 (Version 1)
Quarter: 2023Q1

REPORT INFORMATION
  Report Type: Spontaneous
  Country: US (occurrence: None)
  Receive Date: 20230106
  Receipt Date: 20230106
  Transmission Date: 20230417
  Serious: Yes (unspecified)
  Sender: FDA-Public Use
  Company Number: None

PATIENT
  Age: 65 Year
  Sex: Male
  Weight: 83.25 kg

DRUGS (7)
  1. POLYETHYLENE GLYCOL 3350, SODIUM CHLORIDE, SODIUM BICARBONATE AND POTA [Suspect]
     Active Substance: POLYETHYLENE GLYCOL 3350\POTASSIUM CHLORIDE\SODIUM BICARBONATE\SODIUM CHLORIDE
     Indication: Colonoscopy
     Dosage: OTHER STRENGTH : SEE PICTURE;?FREQUENCY : TWICE A DAY;?
     Route: 048
     Dates: start: 20230105, end: 20230105
  2. OZEMPIC [Concomitant]
  3. LISINOPRIL [Concomitant]
     Active Substance: LISINOPRIL
  4. METFORMIN [Concomitant]
     Active Substance: METFORMIN HYDROCHLORIDE
  5. ATORVASTATIN CALCIUM [Concomitant]
  6. TAMSULOSIN [Concomitant]
     Active Substance: TAMSULOSIN
  7. ONE-A-DAY NOS [Concomitant]
     Active Substance: MINERALS\VITAMINS

REACTIONS (8)
  - Flushing [None]
  - Pruritus [None]
  - Pruritus [None]
  - Chills [None]
  - Laryngeal oedema [None]
  - Pallor [None]
  - Dark circles under eyes [None]
  - Blood pressure increased [None]

NARRATIVE: CASE EVENT DATE: 20230105
